FAERS Safety Report 8412752-4 (Version None)
Quarter: 2012Q2

REPORT INFORMATION
  Report Type: 
  Country: None (occurrence: None)
  Receive Date: 20120605
  Receipt Date: 20120523
  Transmission Date: 20120825
  Serious: No
  Sender: FDA-Public Use
  Company Number: US-AMGEN-USASP2012032473

PATIENT
  Sex: Female

DRUGS (4)
  1. ENBREL [Suspect]
     Indication: PSORIATIC ARTHROPATHY
     Dosage: 50 MG, QWK
     Dates: start: 20110701
  2. VITAMIN D [Concomitant]
     Dosage: UNK
  3. SYMBICORT [Concomitant]
  4. CENTRUM SILVER                     /01292501/ [Concomitant]
     Dosage: UNK

REACTIONS (1)
  - SYNOVIAL CYST [None]
